FAERS Safety Report 21171709 (Version 2)
Quarter: 2022Q4

REPORT INFORMATION
  Report Type: Report from Study
  Country: US (occurrence: US)
  Receive Date: 20220804
  Receipt Date: 20221020
  Transmission Date: 20230113
  Serious: Yes (Other)
  Sender: FDA-Public Use
  Company Number: US-BRISTOL-MYERS SQUIBB COMPANY-2022-084049

PATIENT
  Age: 58 Year
  Sex: Male
  Weight: 82.1 kg

DRUGS (2)
  1. REVLIMID [Suspect]
     Active Substance: LENALIDOMIDE
     Indication: Plasma cell myeloma
     Dosage: 14 OUT OF 21 DAYS
     Route: 048
     Dates: start: 202103
  2. REVLIMID [Suspect]
     Active Substance: LENALIDOMIDE
     Dosage: DAILY FOR 2 WEEKS FOLLOWED BY 1 WEEK OFF
     Route: 048
     Dates: start: 202103

REACTIONS (3)
  - Laboratory test abnormal [Unknown]
  - COVID-19 [Unknown]
  - Off label use [Unknown]
